FAERS Safety Report 16078664 (Version 4)
Quarter: 2023Q2

REPORT INFORMATION
  Report Type: Spontaneous
  Country: US (occurrence: US)
  Receive Date: 20190315
  Receipt Date: 20230606
  Transmission Date: 20230722
  Serious: Yes (Other)
  Sender: FDA-Public Use
  Company Number: US-009507513-1903USA006709

PATIENT
  Sex: Female
  Weight: 90.703 kg

DRUGS (2)
  1. JANUVIA [Suspect]
     Active Substance: SITAGLIPTIN PHOSPHATE
     Indication: Type 2 diabetes mellitus
     Dosage: 100 MILLIGRAM, ONCE DAILY
     Route: 065
     Dates: start: 20081110, end: 20140812
  2. VICTOZA [Suspect]
     Active Substance: LIRAGLUTIDE
     Indication: Type 2 diabetes mellitus
     Dosage: 18MG/3ML, HS
     Route: 065
     Dates: start: 20140328, end: 20140428

REACTIONS (28)
  - Pancreatic carcinoma metastatic [Unknown]
  - Acinar cell carcinoma of pancreas [Unknown]
  - Pancreatic neuroendocrine tumour metastatic [Unknown]
  - Metastases to peripheral vascular system [Unknown]
  - Metastases to lymph nodes [Unknown]
  - Pancreatic duct dilatation [Unknown]
  - Angina pectoris [Unknown]
  - Chronic kidney disease [Unknown]
  - Myocardial infarction [Unknown]
  - Coronary artery disease [Unknown]
  - Acquired mixed hyperlipidaemia [Unknown]
  - Pancreaticoduodenectomy [Unknown]
  - Depression [Unknown]
  - Anxiety [Unknown]
  - Blood cholesterol abnormal [Unknown]
  - Hypersensitivity [Unknown]
  - Neuralgia [Unknown]
  - Myalgia [Unknown]
  - Renal cyst [Unknown]
  - Pancreatectomy [Unknown]
  - Hypoglycaemia [Unknown]
  - Hyperglycaemia [Unknown]
  - Essential hypertension [Unknown]
  - Diabetic neuropathy [Unknown]
  - Irritable bowel syndrome [Unknown]
  - Asthma [Unknown]
  - Back pain [Unknown]
  - Metabolic syndrome [Unknown]

NARRATIVE: CASE EVENT DATE: 20091101
